FAERS Safety Report 14399059 (Version 1)
Quarter: 2018Q1

REPORT INFORMATION
  Report Type: Spontaneous
  Country: US (occurrence: US)
  Receive Date: 20180117
  Receipt Date: 20180117
  Transmission Date: 20180509
  Serious: No
  Sender: FDA-Public Use
  Company Number: US-JNJFOC-20171218662

PATIENT
  Sex: Male

DRUGS (1)
  1. XARELTO [Suspect]
     Active Substance: RIVAROXABAN
     Indication: HEART VALVE INCOMPETENCE
     Route: 048

REACTIONS (3)
  - Hypoacusis [Unknown]
  - Off label use [Unknown]
  - Product use in unapproved indication [Unknown]
